FAERS Safety Report 8020195-0 (Version None)
Quarter: 2012Q1

REPORT INFORMATION
  Report Type: 
  Country: None (occurrence: None)
  Receive Date: 20120103
  Receipt Date: 20111220
  Transmission Date: 20120608
  Serious: Yes (Hospitalization, Other)
  Sender: FDA-Public Use
  Company Number: BR-SANOFI-AVENTIS-2011SA083760

PATIENT
  Age: 76 Year
  Sex: Female
  Weight: 74 kg

DRUGS (8)
  1. ATENOLOL [Concomitant]
     Dosage: STRENGTH OF TABLET: 50 MG
     Route: 048
  2. LOSARTAN POTASSIUM [Concomitant]
     Dosage: STRENGTH OF TABLET: 50 MG
     Route: 048
  3. LANTUS [Suspect]
     Route: 065
     Dates: end: 20100101
  4. ISORDIL [Concomitant]
     Dosage: STRENGTH OF TABLET: 10 MG
     Route: 048
  5. BETAHISTINE HYDROCHLORIDE [Concomitant]
     Route: 048
  6. NOVORAPID [Concomitant]
     Dates: end: 20100101
  7. ASPIRIN [Concomitant]
     Dosage: 2 TABS AT LUNCH; STRENGTH OF TABLET: 100 MG
     Route: 048
  8. RANITIDINE [Concomitant]
     Indication: GASTRIC DISORDER
     Dosage: STRENGTH OF TABLET: 75 MG
     Route: 048

REACTIONS (13)
  - INJECTION SITE HAEMATOMA [None]
  - INJECTION SITE EXTRAVASATION [None]
  - MEMORY IMPAIRMENT [None]
  - CEREBROVASCULAR ACCIDENT [None]
  - HYPERHIDROSIS [None]
  - HYPOGLYCAEMIA [None]
  - HYPOACUSIS [None]
  - HYPERGLYCAEMIA [None]
  - FATIGUE [None]
  - TRANSIENT ISCHAEMIC ATTACK [None]
  - ASTHENIA [None]
  - INJECTION SITE REACTION [None]
  - HYPOTENSION [None]
